FAERS Safety Report 16491545 (Version 1)
Quarter: 2019Q3

REPORT INFORMATION
  Report Type: Spontaneous
  Country: US (occurrence: US)
  Receive Date: 20190627
  Receipt Date: 20190627
  Transmission Date: 20191004
  Serious: Yes (Other)
  Sender: FDA-Public Use
  Company Number: None

PATIENT
  Age: 65 Year
  Sex: Male
  Weight: 94.95 kg

DRUGS (5)
  1. ABIRATERONE ACETATE. [Suspect]
     Active Substance: ABIRATERONE ACETATE
     Indication: PROSTATE CANCER
     Route: 048
     Dates: start: 20181214
  2. VITAMIN D (CHOLECALCIFEROL) [Concomitant]
     Active Substance: CHOLECALCIFEROL
  3. SIMVASTATIN. [Concomitant]
     Active Substance: SIMVASTATIN
  4. LORAZEPAM. [Concomitant]
     Active Substance: LORAZEPAM
  5. CALCIUM ACETATE. [Concomitant]
     Active Substance: CALCIUM ACETATE

REACTIONS (1)
  - Hospice care [None]
